FAERS Safety Report 7672106-5 (Version None)
Quarter: 2011Q3

REPORT INFORMATION
  Report Type: 
  Country: None (occurrence: None)
  Receive Date: 20110809
  Receipt Date: 20110802
  Transmission Date: 20111222
  Serious: Yes (Death)
  Sender: FDA-Public Use
  Company Number: PHEH2011US00602

PATIENT
  Age: 87 Year
  Sex: Male
  Weight: 71.202 kg

DRUGS (1)
  1. TOBI [Suspect]
     Dosage: 300 MG, BID, 28 DAY ON AND 28 DAYS OFF
     Dates: start: 20100118

REACTIONS (1)
  - DEATH [None]
